FAERS Safety Report 8135195-X (Version None)
Quarter: 2012Q1

REPORT INFORMATION
  Report Type: 
  Country: None (occurrence: None)
  Receive Date: 20120214
  Receipt Date: 20120208
  Transmission Date: 20120608
  Serious: Yes (Other)
  Sender: FDA-Public Use
  Company Number: US-PFIZER INC-2012034876

PATIENT
  Sex: Female
  Weight: 59 kg

DRUGS (3)
  1. CYMBALTA [Concomitant]
     Indication: DEPRESSION
  2. PREMPRO [Suspect]
     Indication: HOT FLUSH
     Dosage: UNK, 1X/DAY
     Route: 048
     Dates: start: 20080101
  3. CYMBALTA [Concomitant]
     Indication: ANXIETY
     Dosage: UNK

REACTIONS (1)
  - BLOOD GLUCOSE INCREASED [None]
